FAERS Safety Report 8085533-1 (Version None)
Quarter: 2012Q1

REPORT INFORMATION
  Report Type: 
  Country: None (occurrence: None)
  Receive Date: 20120128
  Receipt Date: 20110504
  Transmission Date: 20120608
  Serious: Yes (Hospitalization)
  Sender: FDA-Public Use
  Company Number: US-ABBOTT-11P-163-0712958-00

PATIENT
  Sex: Female
  Weight: 65.376 kg

DRUGS (18)
  1. HUMIRA [Suspect]
     Indication: COLITIS ULCERATIVE
     Dates: start: 20110317
  2. IMDUR [Concomitant]
     Indication: PRODUCT USED FOR UNKNOWN INDICATION
     Route: 048
  3. PRILOSEC [Concomitant]
     Indication: PRODUCT USED FOR UNKNOWN INDICATION
  4. FERROUS GLUCONATE [Concomitant]
     Indication: PRODUCT USED FOR UNKNOWN INDICATION
     Route: 048
  5. METOPROLOL SUCCINATE [Concomitant]
     Indication: PRODUCT USED FOR UNKNOWN INDICATION
     Route: 048
  6. ASACOL [Concomitant]
     Indication: PRODUCT USED FOR UNKNOWN INDICATION
     Route: 048
  7. KENALOG [Concomitant]
     Indication: RECTAL LESION
  8. HUMIRA [Suspect]
     Indication: CROHN'S DISEASE
  9. LANTUS [Concomitant]
     Indication: PRODUCT USED FOR UNKNOWN INDICATION
  10. PREDNISONE TAB [Concomitant]
     Indication: PRODUCT USED FOR UNKNOWN INDICATION
     Route: 048
  11. HUMALOG [Concomitant]
     Indication: PRODUCT USED FOR UNKNOWN INDICATION
  12. PERCOCET [Concomitant]
     Indication: PRODUCT USED FOR UNKNOWN INDICATION
     Route: 048
  13. LIDOCAINE JELLY [Concomitant]
     Indication: RECTAL LESION
  14. HUMIRA [Suspect]
     Indication: PYODERMA GANGRENOSUM
     Dosage: STARTER KIT
     Dates: start: 20110224
  15. DIOVAN HCT [Concomitant]
     Indication: PRODUCT USED FOR UNKNOWN INDICATION
     Route: 048
  16. PRAVASTATIN [Concomitant]
     Indication: PRODUCT USED FOR UNKNOWN INDICATION
     Route: 048
  17. CE-MP [Concomitant]
     Indication: PRODUCT USED FOR UNKNOWN INDICATION
  18. MERCAPTOPURINE [Concomitant]
     Indication: RECTAL LESION
     Route: 048

REACTIONS (16)
  - TYPE 2 DIABETES MELLITUS [None]
  - HYPERTENSION [None]
  - BLOOD CREATININE INCREASED [None]
  - DYSLIPIDAEMIA [None]
  - GASTROOESOPHAGEAL REFLUX DISEASE [None]
  - DISCOMFORT [None]
  - CROHN'S DISEASE [None]
  - ANAEMIA [None]
  - RECTAL LESION [None]
  - HYPOGLYCAEMIA [None]
  - PNEUMONIA [None]
  - PYREXIA [None]
  - DEHYDRATION [None]
  - PYODERMA GANGRENOSUM [None]
  - DYSPNOEA [None]
  - BLOOD UREA INCREASED [None]
